FAERS Safety Report 8470702-9 (Version None)
Quarter: 2012Q2

REPORT INFORMATION
  Report Type: 
  Country: None (occurrence: None)
  Receive Date: 20120627
  Receipt Date: 20120625
  Transmission Date: 20120825
  Serious: No
  Sender: FDA-Public Use
  Company Number: US-PFIZER INC-2011209493

PATIENT
  Sex: Female
  Weight: 74.83 kg

DRUGS (12)
  1. CHANTIX [Suspect]
     Dosage: 1 MG, UNK
     Dates: start: 20110101
  2. NABUMETONE [Concomitant]
     Indication: ANTIINFLAMMATORY THERAPY
     Dosage: 1500 MG, DAILY
  3. PRISTIQ [Concomitant]
     Indication: DEPRESSION
     Dosage: 50 MG, DAILY
  4. KLONOPIN [Concomitant]
     Indication: SLEEP DISORDER
     Dosage: 4 MG, DAILY
     Route: 048
  5. ASPIRIN [Concomitant]
     Indication: ISCHAEMIC HEART DISEASE PROPHYLAXIS
     Dosage: 81 MG, DAILY
  6. MEDROXYPROGESTERONE [Concomitant]
     Indication: MENSTRUAL DISORDER
     Dosage: 20 MG, DAILY
  7. LATUDA [Concomitant]
     Indication: AFFECTIVE DISORDER
     Dosage: 40 MG, DAILY
  8. OMEPRAZOLE [Concomitant]
     Indication: ABDOMINAL DISCOMFORT
     Dosage: 20 MG, AS NEEDED
  9. CHANTIX [Suspect]
     Indication: SMOKING CESSATION THERAPY
     Dosage: 0.5 MG, UNK
     Route: 048
     Dates: start: 20110925, end: 20110101
  10. CHANTIX [Suspect]
     Dosage: 1 MG, UNK
     Dates: start: 20120625
  11. METHADONE [Concomitant]
     Indication: PAIN
     Dosage: 20 MG, 3X/DAY
  12. MIRTAZAPINE [Concomitant]
     Indication: SLEEP DISORDER
     Dosage: 30 MG, DAILY

REACTIONS (3)
  - VOMITING [None]
  - DRUG DISPENSING ERROR [None]
  - INCORRECT DOSE ADMINISTERED [None]
